FAERS Safety Report 4667516-4 (Version None)
Quarter: 2005Q2

REPORT INFORMATION
  Report Type: 
  Country: None (occurrence: None)
  Receive Date: 20050519
  Receipt Date: 20050519
  Transmission Date: 20051028
  Serious: Yes (Life-Threatening)
  Sender: FDA-Public Use
  Company Number: None

PATIENT
  Age: 44 Year
  Sex: Female
  Weight: 81.6475 kg

DRUGS (10)
  1. FENTANYL [Suspect]
     Indication: ARTHRALGIA
     Dosage: 100 MCG   1 EVERY 48 HRS TRANSDERMAL
     Route: 062
     Dates: start: 20050206, end: 20050418
  2. FENTANYL [Suspect]
     Indication: RHEUMATOID ARTHRITIS
     Dosage: 100 MCG   1 EVERY 48 HRS TRANSDERMAL
     Route: 062
     Dates: start: 20050206, end: 20050418
  3. ACTIQ [Concomitant]
  4. WELLBUTRIN [Concomitant]
  5. CYMBALTA [Concomitant]
  6. INSULIN [Concomitant]
  7. MULTI-VITAMIN [Concomitant]
  8. SYNTHROID [Concomitant]
  9. CIPRO [Concomitant]
  10. DOXIPIN [Concomitant]

REACTIONS (12)
  - ABDOMINAL PAIN UPPER [None]
  - DEPRESSED LEVEL OF CONSCIOUSNESS [None]
  - DRUG WITHDRAWAL SYNDROME [None]
  - FEELING ABNORMAL [None]
  - FEELING JITTERY [None]
  - HEADACHE [None]
  - HEART RATE DECREASED [None]
  - NAUSEA [None]
  - PAIN [None]
  - PRURITUS [None]
  - SOMNOLENCE [None]
  - THERAPEUTIC RESPONSE UNEXPECTED WITH DRUG SUBSTITUTION [None]
